FAERS Safety Report 23503295 (Version 2)
Quarter: 2024Q1

REPORT INFORMATION
  Report Type: Other
  Country: US (occurrence: None)
  Receive Date: 20240208
  Receipt Date: 20240226
  Transmission Date: 20240410
  Serious: No
  Sender: FDA-Public Use
  Company Number: US-ROCHE-3243895

PATIENT
  Age: 36 Year
  Sex: Female
  Weight: 59.02 kg

DRUGS (12)
  1. OCREVUS [Suspect]
     Active Substance: OCRELIZUMAB
     Indication: Relapsing-remitting multiple sclerosis
     Dosage: 300 MG INFUSED ON DAY 1 AND DAY 15 THEN 600 MG EVERY 6 MONTHS, DATE OF INFUSION: 19/NOV/2021, 03/DEC
     Route: 042
     Dates: start: 20211119, end: 20220603
  2. AMBIEN [Concomitant]
     Active Substance: ZOLPIDEM TARTRATE
     Indication: Insomnia
     Route: 048
  3. ELETRIPTAN [Concomitant]
     Active Substance: ELETRIPTAN
     Indication: Migraine
     Route: 048
  4. BOTOX [Concomitant]
     Active Substance: ONABOTULINUMTOXINA
     Indication: Migraine
     Dosage: 200 CC
     Route: 030
  5. BENADRYL [Concomitant]
     Active Substance: DIPHENHYDRAMINE HYDROCHLORIDE
  6. SOLU-MEDROL [Concomitant]
     Active Substance: METHYLPREDNISOLONE SODIUM SUCCINATE
  7. UBRELVY [Concomitant]
     Active Substance: UBROGEPANT
  8. TIZANIDINE [Concomitant]
     Active Substance: TIZANIDINE
  9. FROVATRIPTAN [Concomitant]
     Active Substance: FROVATRIPTAN
  10. AIMOVIG [Concomitant]
     Active Substance: ERENUMAB-AOOE
  11. ZOFRAN [Concomitant]
     Active Substance: ONDANSETRON HYDROCHLORIDE
  12. IMITREX [Concomitant]
     Active Substance: SUMATRIPTAN SUCCINATE

REACTIONS (5)
  - Maternal exposure before pregnancy [Unknown]
  - Headache [Unknown]
  - Pain [Unknown]
  - Muscle spasms [Unknown]
  - Dyslipidaemia [Unknown]
